FAERS Safety Report 7229199-9 (Version None)
Quarter: 2011Q1

REPORT INFORMATION
  Report Type: 
  Country: None (occurrence: None)
  Receive Date: 20110117
  Receipt Date: 20110105
  Transmission Date: 20110831
  Serious: Yes (Other)
  Sender: FDA-Public Use
  Company Number: US-PAR PHARMACEUTICAL, INC-2011SCPR002627

PATIENT

DRUGS (3)
  1. CHOLESTYRAMINE [Suspect]
     Indication: FREQUENT BOWEL MOVEMENTS
     Dosage: UNK
     Route: 048
  2. PRAVACHOL [Concomitant]
     Indication: BLOOD CHOLESTEROL INCREASED
     Dosage: UNK
     Route: 048
  3. CHOLESTYRAMINE [Suspect]
     Dosage: 1 SCOOP A DAY
     Route: 048
     Dates: start: 20101227, end: 20101229

REACTIONS (4)
  - LOWER GASTROINTESTINAL HAEMORRHAGE [None]
  - TREMOR [None]
  - FAECES DISCOLOURED [None]
  - MELAENA [None]
